FAERS Safety Report 7406452-7 (Version None)
Quarter: 2011Q2

REPORT INFORMATION
  Report Type: 
  Country: None (occurrence: None)
  Receive Date: 20110411
  Receipt Date: 20110407
  Transmission Date: 20111010
  Serious: Yes (Death, Other)
  Sender: FDA-Public Use
  Company Number: PHHY2010NL19026

PATIENT
  Sex: Male

DRUGS (6)
  1. ZOMETA [Suspect]
     Dosage: 4 MG, UNK
     Route: 042
     Dates: start: 20080124, end: 20100325
  2. ZOMETA [Suspect]
     Indication: PROSTATE CANCER METASTATIC
     Dosage: 4 MG, UNK
     Route: 042
     Dates: start: 20051129
  3. ZOMETA [Suspect]
     Dosage: 4 MG, ONCE PER 6 WEEKS
     Route: 042
     Dates: start: 20110101
  4. ZOMETA [Suspect]
     Dosage: 4 MG, UNK
     Route: 042
     Dates: start: 20100601
  5. ZOMETA [Suspect]
     Dosage: 4 MG, UNK
     Route: 042
     Dates: start: 20100316
  6. ZOMETA [Suspect]
     Dosage: 4 MG, ONCE PER 6 WEEKS
     Route: 042
     Dates: start: 20110124

REACTIONS (6)
  - DEATH [None]
  - TERMINAL STATE [None]
  - GENERAL PHYSICAL HEALTH DETERIORATION [None]
  - FATIGUE [None]
  - RENAL IMPAIRMENT [None]
  - NEOPLASM MALIGNANT [None]
